FAERS Safety Report 6153898-3 (Version None)
Quarter: 2009Q2

REPORT INFORMATION
  Report Type: 
  Country: None (occurrence: None)
  Receive Date: 20090414
  Receipt Date: 20090406
  Transmission Date: 20091009
  Serious: Yes (Other)
  Sender: FDA-Public Use
  Company Number: US-JNJFOC-20090402111

PATIENT
  Sex: Male
  Weight: 108.86 kg

DRUGS (15)
  1. DURAGESIC-100 [Suspect]
     Indication: MUSCULOSKELETAL DISCOMFORT
     Route: 062
  2. DURAGESIC-100 [Suspect]
     Indication: ARTHROPATHY
     Route: 062
  3. LYRICA [Concomitant]
     Indication: FIBROMYALGIA
     Route: 048
  4. CELEBREX [Concomitant]
     Indication: ARTHRITIS
     Route: 048
  5. CYMBALTA [Concomitant]
     Indication: DEPRESSION
     Route: 048
  6. NEXIUM [Concomitant]
     Indication: HYPERCHLORHYDRIA
     Route: 048
  7. LUNESTA [Concomitant]
     Indication: SLEEP DISORDER
     Route: 048
  8. ZOCOR [Concomitant]
     Indication: BLOOD CHOLESTEROL
     Route: 048
  9. DILTIAZEM [Concomitant]
     Indication: GASTRIC DISORDER
     Route: 048
  10. PROMETHAZINE [Concomitant]
     Indication: VOMITING
     Route: 048
  11. BACLOFEN [Concomitant]
     Indication: PAIN
     Route: 048
  12. NORCO [Concomitant]
     Indication: PAIN
     Dosage: 10/325 AS NEEDED FOR PAIN
     Route: 048
  13. DIAZEPAM [Concomitant]
     Indication: ANXIETY
     Dosage: 2/NEEDED PER DAY
     Route: 048
  14. DILAUDID [Concomitant]
     Indication: PAIN
     Dosage: AS NEEDED
     Route: 048
  15. IMITRAX [Concomitant]
     Indication: MIGRAINE
     Dosage: AS NEEDED
     Route: 050

REACTIONS (7)
  - ABDOMINAL ADHESIONS [None]
  - CONSTIPATION [None]
  - GASTRIC DISORDER [None]
  - HYPERHIDROSIS [None]
  - OVERGROWTH BACTERIAL [None]
  - SEBORRHOEA [None]
  - WRONG TECHNIQUE IN DRUG USAGE PROCESS [None]
